FAERS Safety Report 8034384-2 (Version None)
Quarter: 2012Q1

REPORT INFORMATION
  Report Type: 
  Country: None (occurrence: None)
  Receive Date: 20120110
  Receipt Date: 20120103
  Transmission Date: 20120608
  Serious: Yes (Life-Threatening, Hospitalization)
  Sender: FDA-Public Use
  Company Number: FR-JNJFOC-20120100571

PATIENT
  Age: 28 Year
  Sex: Female

DRUGS (8)
  1. LEUCOVORIN CALCIUM [Concomitant]
  2. METHOTREXATE [Suspect]
     Indication: COLITIS ULCERATIVE
     Route: 058
     Dates: start: 20111111, end: 20111111
  3. REMICADE [Suspect]
     Route: 042
     Dates: start: 20111115
  4. POTASSIUM CHLORIDE [Concomitant]
  5. REMICADE [Suspect]
     Indication: COLITIS ULCERATIVE
     Route: 042
     Dates: start: 20110926
  6. PREDNISONE TAB [Concomitant]
     Indication: COLITIS ULCERATIVE
     Dates: start: 20080101, end: 20110601
  7. REMICADE [Suspect]
     Route: 042
     Dates: start: 20110101
  8. METHOTREXATE [Suspect]
     Route: 058
     Dates: start: 20110801

REACTIONS (3)
  - CROHN'S DISEASE [None]
  - INTENTIONAL OVERDOSE [None]
  - COLITIS ULCERATIVE [None]
